FAERS Safety Report 10231028 (Version 3)
Quarter: 2014Q3

REPORT INFORMATION
  Report Type: Spontaneous
  Country: JP (occurrence: JP)
  Receive Date: 20140611
  Receipt Date: 20140918
  Transmission Date: 20150326
  Serious: Yes (Hospitalization, Other)
  Sender: FDA-Public Use
  Company Number: JP-JNJFOC-20140603743

PATIENT
  Age: 32 Year
  Sex: Male

DRUGS (9)
  1. ISONIAZID. [Concomitant]
     Active Substance: ISONIAZID
     Route: 048
     Dates: start: 20130205, end: 20131103
  2. PREDONINE [Suspect]
     Active Substance: PREDNISOLONE\PREDNISOLONE ACETATE\PREDNISOLONE SODIUM SUCCINATE
     Indication: PYREXIA
     Route: 048
     Dates: start: 20140512, end: 20140516
  3. FAMOTIDINE. [Concomitant]
     Active Substance: FAMOTIDINE
     Route: 048
     Dates: start: 20130125
  4. 5 AMINOSALICYLIC ACID [Concomitant]
     Route: 065
  5. DECADRON [Suspect]
     Active Substance: DEXAMETHASONE
     Indication: PYREXIA
     Route: 048
     Dates: start: 20140516, end: 20140521
  6. REMICADE [Suspect]
     Active Substance: INFLIXIMAB
     Indication: COLITIS ULCERATIVE
     Dosage: 10TH DOSE
     Route: 042
     Dates: start: 20140407, end: 20140407
  7. REMICADE [Suspect]
     Active Substance: INFLIXIMAB
     Indication: COLITIS ULCERATIVE
     Route: 042
     Dates: start: 20130205
  8. ASACOL [Concomitant]
     Active Substance: MESALAMINE
     Indication: PYREXIA
     Route: 048
     Dates: start: 20130125
  9. MIYA-BM [Concomitant]
     Active Substance: CLOSTRIDIUM BUTYRICUM SPORES STRAIN M-55
     Route: 048
     Dates: start: 20130125

REACTIONS (2)
  - Peritoneal tuberculosis [Recovering/Resolving]
  - Pulmonary tuberculosis [Recovering/Resolving]

NARRATIVE: CASE EVENT DATE: 20140516
